FAERS Safety Report 4962227-X (Version None)
Quarter: 2006Q1

REPORT INFORMATION
  Report Type: 
  Country: None (occurrence: None)
  Receive Date: 20060329
  Receipt Date: 20060320
  Transmission Date: 20060701
  Serious: Yes (Hospitalization, Other)
  Sender: FDA-Public Use
  Company Number: DEWYE483720MAR06

PATIENT
  Age: 42 Year
  Sex: Female

DRUGS (7)
  1. VENLAFAXINE HCL [Suspect]
     Indication: DEPRESSION
     Dosage: SEE IMAGE
     Route: 048
     Dates: start: 20051124, end: 20051130
  2. VENLAFAXINE HCL [Suspect]
     Indication: DEPRESSION
     Dosage: SEE IMAGE
     Route: 048
     Dates: start: 20051201
  3. NEUROCIL (LEVOMEPROMAZINE MALEATE, , 0) [Suspect]
     Dosage: SEE IMAGE
     Route: 048
     Dates: start: 20051124, end: 20051128
  4. NEUROCIL (LEVOMEPROMAZINE MALEATE, , 0) [Suspect]
     Dosage: SEE IMAGE
     Route: 048
     Dates: start: 20051129, end: 20051207
  5. NEUROCIL (LEVOMEPROMAZINE MALEATE, , 0) [Suspect]
     Dosage: SEE IMAGE
     Route: 048
     Dates: start: 20051208, end: 20051211
  6. ORTHO EVRA [Suspect]
     Dosage: 150 MCG NGMN, 20 MCG EE PER 24 H TRANSDERMAL
     Route: 062
     Dates: start: 20051123
  7. LACTULOSE [Concomitant]

REACTIONS (3)
  - DRUG INTERACTION [None]
  - FIBRIN D DIMER INCREASED [None]
  - THROMBOPHLEBITIS [None]
